FAERS Safety Report 8977939 (Version 1)
Quarter: 2012Q4

REPORT INFORMATION
  Report Type: 
  Country: FR (occurrence: FR)
  Receive Date: 20121220
  Receipt Date: 20121220
  Transmission Date: 20130627
  Serious: Yes (Hospitalization)
  Sender: FDA-Public Use
  Company Number: FR-ROCHE-1168230

PATIENT
  Age: 75 Year
  Sex: Female

DRUGS (7)
  1. MABTHERA [Suspect]
     Indication: WALDENSTROM^S MACROGLOBULINAEMIA
     Route: 042
     Dates: start: 20120719, end: 20120719
  2. CHLORAMINOPHENE [Concomitant]
     Route: 048
     Dates: start: 20120719, end: 20120727
  3. MEDROL [Concomitant]
     Route: 048
     Dates: start: 20120719, end: 20120727
  4. CEFTRIAXONE [Concomitant]
     Route: 065
     Dates: start: 20120829
  5. TAVANIC [Concomitant]
     Route: 065
     Dates: start: 20120831
  6. BACTRIM [Concomitant]
     Route: 065
     Dates: start: 20120831
  7. PENTACARINAT [Concomitant]

REACTIONS (2)
  - Acute respiratory distress syndrome [Recovered/Resolved]
  - Interstitial lung disease [Recovering/Resolving]
